FAERS Safety Report 6638255-5 (Version None)
Quarter: 2010Q1

REPORT INFORMATION
  Report Type: 
  Country: None (occurrence: None)
  Receive Date: 20100301
  Receipt Date: 20090421
  Transmission Date: 20100710
  Serious: Yes (Hospitalization)
  Sender: FDA-Public Use
  Company Number: RB-14543-2009

PATIENT
  Age: 27 Year
  Sex: Female

DRUGS (8)
  1. SUBOXONE [Suspect]
     Indication: DRUG DEPENDENCE
     Dosage: 8 MG QD SUBLINGUAL, 8 MG QD SUBLINGUAL, 2 MG QD SUBLINGUAL
     Route: 060
     Dates: start: 20090101, end: 20090201
  2. SUBOXONE [Suspect]
     Indication: PAIN
     Dosage: 8 MG QD SUBLINGUAL, 8 MG QD SUBLINGUAL, 2 MG QD SUBLINGUAL
     Route: 060
     Dates: start: 20090101, end: 20090201
  3. SUBOXONE [Suspect]
     Indication: DRUG DEPENDENCE
     Dosage: 8 MG QD SUBLINGUAL, 8 MG QD SUBLINGUAL, 2 MG QD SUBLINGUAL
     Route: 060
     Dates: start: 20090201, end: 20090701
  4. SUBOXONE [Suspect]
     Indication: PAIN
     Dosage: 8 MG QD SUBLINGUAL, 8 MG QD SUBLINGUAL, 2 MG QD SUBLINGUAL
     Route: 060
     Dates: start: 20090201, end: 20090701
  5. SUBOXONE [Suspect]
     Indication: DRUG DEPENDENCE
     Dosage: 8 MG QD SUBLINGUAL, 8 MG QD SUBLINGUAL, 2 MG QD SUBLINGUAL
     Route: 060
     Dates: start: 20090701
  6. SUBOXONE [Suspect]
     Indication: PAIN
     Dosage: 8 MG QD SUBLINGUAL, 8 MG QD SUBLINGUAL, 2 MG QD SUBLINGUAL
     Route: 060
     Dates: start: 20090701
  7. NALTREXONE HYDROCHLORIDE [Suspect]
     Indication: DRUG THERAPY
     Dosage: TOOK 1 1/2 TABLETS
     Dates: start: 20090401, end: 20090401
  8. PROZAC [Concomitant]

REACTIONS (2)
  - DRUG EXPOSURE DURING PREGNANCY [None]
  - DRUG WITHDRAWAL SYNDROME [None]
